FAERS Safety Report 8833155 (Version 3)
Quarter: 2012Q4

REPORT INFORMATION
  Report Type: 
  Country: US (occurrence: US)
  Receive Date: 20121010
  Receipt Date: 20121114
  Transmission Date: 20130627
  Serious: Yes (Other)
  Sender: FDA-Public Use
  Company Number: US-PFIZER INC-2012248804

PATIENT
  Age: 46 Year
  Sex: Female

DRUGS (6)
  1. LYRICA [Suspect]
     Indication: NEUROPATHY
     Dosage: 50 mg, 1x/day at night time
     Route: 048
     Dates: start: 20120815, end: 20120816
  2. LYRICA [Suspect]
     Dosage: 50 mg, 2x/day
     Dates: start: 20120817
  3. LYRICA [Suspect]
     Dosage: 50 mg, 3x/day
  4. LYRICA [Suspect]
     Dosage: 100 mg, 3x/day
     Dates: start: 20120827
  5. LYRICA [Suspect]
     Dosage: 50 mg, 5X a day (250mg rather than 300mg)
     Dates: end: 20121002
  6. LYRICA [Suspect]
     Dosage: 50 mg, 5+1 day
     Route: 048
     Dates: start: 20120815, end: 20121002

REACTIONS (11)
  - Angioedema [Recovered/Resolved]
  - Swelling face [Recovered/Resolved]
  - Drug ineffective [Unknown]
  - Incorrect dose administered [Unknown]
  - Pain [Unknown]
  - Paraesthesia [Unknown]
  - Somnolence [Unknown]
  - Hypoaesthesia [Unknown]
  - Weight increased [Unknown]
  - Hypertension [Unknown]
  - Fatigue [Unknown]
